FAERS Safety Report 5899561-5 (Version None)
Quarter: 2008Q3

REPORT INFORMATION
  Report Type: 
  Country: None (occurrence: None)
  Receive Date: 20080926
  Receipt Date: 20080918
  Transmission Date: 20090109
  Serious: Yes (Other)
  Sender: FDA-Public Use
  Company Number: PHHY2008BR21959

PATIENT
  Age: 18 Year
  Sex: Female
  Weight: 45 kg

DRUGS (4)
  1. RITALIN LA [Suspect]
     Indication: ATTENTION DEFICIT/HYPERACTIVITY DISORDER
     Dosage: 1 DF, ONCE/SINGLE
     Route: 048
  2. RITALIN LA [Suspect]
     Dosage: 0.5 DF, QD
     Route: 048
     Dates: start: 20080918
  3. RITALIN [Suspect]
     Indication: ATTENTION DEFICIT/HYPERACTIVITY DISORDER
     Dosage: 1 DF, QD
     Route: 048
     Dates: start: 20080501
  4. ANTIBIOTICS [Concomitant]
     Indication: INGROWING NAIL
     Dosage: UNK
     Dates: end: 20080912

REACTIONS (7)
  - ABNORMAL BEHAVIOUR [None]
  - AGITATION [None]
  - COORDINATION ABNORMAL [None]
  - DIZZINESS [None]
  - HALLUCINATION [None]
  - HEART RATE INCREASED [None]
  - NAUSEA [None]
